FAERS Safety Report 23989138 (Version 2)
Quarter: 2024Q2

REPORT INFORMATION
  Report Type: Spontaneous
  Country: DE (occurrence: DE)
  Receive Date: 20240619
  Receipt Date: 20240624
  Transmission Date: 20240716
  Serious: Yes (Other)
  Sender: FDA-Public Use
  Company Number: DE-AMGEN-DEUSP2024117658

PATIENT
  Sex: Female

DRUGS (3)
  1. PANITUMUMAB [Suspect]
     Active Substance: PANITUMUMAB
     Indication: Colorectal cancer metastatic
     Dosage: UNK
     Route: 065
  2. SOTORASIB [Suspect]
     Active Substance: SOTORASIB
     Indication: Colorectal cancer metastatic
     Dosage: UNK
     Route: 065
  3. SOTORASIB [Suspect]
     Active Substance: SOTORASIB
     Indication: Off label use
     Dosage: UNK (REDUCED DOSE)
     Route: 065

REACTIONS (2)
  - Hepatotoxicity [Recovered/Resolved]
  - Off label use [Unknown]
